FAERS Safety Report 8354433-1 (Version None)
Quarter: 2012Q2

REPORT INFORMATION
  Report Type: 
  Country: None (occurrence: None)
  Receive Date: 20120511
  Receipt Date: 20120427
  Transmission Date: 20120825
  Serious: Yes (Other)
  Sender: FDA-Public Use
  Company Number: IN-WATSON-2012-07524

PATIENT
  Age: 39 Year
  Sex: Male

DRUGS (1)
  1. LORAZEPAM [Suspect]
     Indication: SLEEP DISORDER
     Dosage: 2-300 MG DAILY
     Route: 065

REACTIONS (6)
  - DRUG DEPENDENCE [None]
  - DRUG ABUSE [None]
  - FEELING OF RELAXATION [None]
  - SOMNOLENCE [None]
  - EUPHORIC MOOD [None]
  - DRUG WITHDRAWAL CONVULSIONS [None]
